FAERS Safety Report 5316346-9 (Version None)
Quarter: 2007Q2

REPORT INFORMATION
  Report Type: 
  Country: None (occurrence: None)
  Receive Date: 20070430
  Receipt Date: 20070416
  Transmission Date: 20071010
  Serious: Yes (Other)
  Sender: FDA-Public Use
  Company Number: GXBR2007US00959

PATIENT
  Age: 24 Year
  Sex: Female

DRUGS (5)
  1. RIBAVIRIN [Suspect]
     Dosage: 200 MG, QD4SDO, ORAL
     Route: 048
     Dates: start: 20060701, end: 20070412
  2. PEGINTERFERON ALFA-2B (PEGINTERGERON ALFA-2B) [Suspect]
     Dosage: 80 UG, QW, SUBCUTANEOUS
     Route: 058
     Dates: start: 20060701, end: 20070412
  3. SYNTHROID [Concomitant]
  4. XANAX [Concomitant]
  5. SUBOXONE [Concomitant]

REACTIONS (5)
  - ABORTION INDUCED [None]
  - ANXIETY [None]
  - DRUG EXPOSURE DURING PREGNANCY [None]
  - HYPOTHYROIDISM [None]
  - PALPITATIONS [None]
